FAERS Safety Report 8514555-9 (Version None)
Quarter: 2012Q3

REPORT INFORMATION
  Report Type: 
  Country: None (occurrence: None)
  Receive Date: 20120717
  Receipt Date: 20120627
  Transmission Date: 20120928
  Serious: No
  Sender: FDA-Public Use
  Company Number: US-009507513-1206USA05357

PATIENT

DRUGS (8)
  1. JANUMET [Suspect]
     Dosage: 1000MG/50
     Route: 048
     Dates: end: 20120627
  2. AMLODIPINE [Concomitant]
     Dosage: 1 DF, QD
     Route: 048
  3. CHLORTHALIDONE [Concomitant]
     Dosage: 25 MG, QD
  4. LISINOPRIL [Concomitant]
     Dosage: 40 MG, QD
  5. TOPROL-XL [Concomitant]
     Dosage: 100 MG, QD
  6. LISINOPRIL [Concomitant]
     Dosage: 40 MG, QD
  7. SIMVASTATIN [Concomitant]
     Dosage: 20 MG, UNK
     Route: 048
  8. RANITIDINE [Concomitant]
     Dosage: 150 MG, UNK

REACTIONS (2)
  - ABDOMINAL PAIN UPPER [None]
  - DIARRHOEA [None]
